FAERS Safety Report 22158913 (Version 3)
Quarter: 2023Q2

REPORT INFORMATION
  Report Type: Other
  Country: US (occurrence: None)
  Receive Date: 20230331
  Receipt Date: 20230406
  Transmission Date: 20230721
  Serious: Yes (Death)
  Sender: FDA-Public Use
  Company Number: US-ROCHE-3320867

PATIENT
  Age: 53 Year
  Sex: Female

DRUGS (12)
  1. AVASTIN [Suspect]
     Active Substance: BEVACIZUMAB
     Indication: Neoplasm malignant
     Dosage: INFUSE 300MG INTRAVENOUSLY EVERY 2 WEEK(S)
     Route: 065
  2. AVASTIN [Suspect]
     Active Substance: BEVACIZUMAB
     Indication: Oedema
  3. AVASTIN [Suspect]
     Active Substance: BEVACIZUMAB
     Indication: Hepatobiliary cancer
  4. AVASTIN [Suspect]
     Active Substance: BEVACIZUMAB
     Indication: Leukocytosis
  5. AVASTIN [Suspect]
     Active Substance: BEVACIZUMAB
     Indication: Pancreatitis acute
  6. AVASTIN [Suspect]
     Active Substance: BEVACIZUMAB
     Indication: Ascites
  7. AVASTIN [Suspect]
     Active Substance: BEVACIZUMAB
     Indication: Transaminases increased
  8. AVASTIN [Suspect]
     Active Substance: BEVACIZUMAB
     Indication: White blood cell count increased
  9. AVASTIN [Suspect]
     Active Substance: BEVACIZUMAB
     Indication: Pancreatitis acute
  10. AVASTIN [Suspect]
     Active Substance: BEVACIZUMAB
     Indication: Jaundice
  11. AVASTIN [Suspect]
     Active Substance: BEVACIZUMAB
     Indication: Cholangiocarcinoma
  12. AVASTIN [Suspect]
     Active Substance: BEVACIZUMAB
     Indication: Breast cancer

REACTIONS (1)
  - Ill-defined disorder [Fatal]
